FAERS Safety Report 4865598-8 (Version None)
Quarter: 2005Q4

REPORT INFORMATION
  Report Type: 
  Country: None (occurrence: None)
  Receive Date: 20051220
  Receipt Date: 20051208
  Transmission Date: 20060501
  Serious: Yes (Hospitalization, Other)
  Sender: FDA-Public Use
  Company Number: 2005167149

PATIENT
  Age: 20 Year
  Sex: Female
  Weight: 63.5036 kg

DRUGS (4)
  1. DEPO-PROVERA [Suspect]
     Indication: CONTRACEPTION
     Dosage: SEE IMAGE
     Dates: start: 20020201, end: 20020201
  2. DEPO-PROVERA [Suspect]
     Indication: MENORRHAGIA
     Dosage: SEE IMAGE
     Dates: start: 20020201, end: 20020201
  3. DEPO-PROVERA [Suspect]
     Indication: CONTRACEPTION
     Dosage: SEE IMAGE
     Dates: start: 20050918, end: 20050918
  4. DEPO-PROVERA [Suspect]
     Indication: MENORRHAGIA
     Dosage: SEE IMAGE
     Dates: start: 20050918, end: 20050918

REACTIONS (11)
  - ABORTION INCOMPLETE [None]
  - ABORTION SPONTANEOUS [None]
  - DRUG EXPOSURE DURING PREGNANCY [None]
  - HAEMORRHAGE [None]
  - INFECTIOUS MONONUCLEOSIS [None]
  - OVARIAN CYST [None]
  - PREGNANCY [None]
  - SPLENOMEGALY [None]
  - TONSILLECTOMY [None]
  - WEIGHT DECREASED [None]
  - WEIGHT INCREASED [None]
